FAERS Safety Report 25254601 (Version 1)
Quarter: 2025Q2

REPORT INFORMATION
  Report Type: Spontaneous
  Country: US (occurrence: US)
  Receive Date: 20250430
  Receipt Date: 20250430
  Transmission Date: 20250716
  Serious: No
  Sender: STALLERGENES
  Company Number: US-STALCOR-2025-AER-00508

PATIENT
  Age: 10 Year
  Sex: Male

DRUGS (3)
  1. PALFORZIA [Suspect]
     Active Substance: PEANUT
     Indication: Food allergy
     Route: 048
     Dates: end: 202502
  2. PALFORZIA [Suspect]
     Active Substance: PEANUT
     Route: 048
     Dates: end: 202502
  3. PALFORZIA [Suspect]
     Active Substance: PEANUT
     Dosage: PALFORZIA LEVEL 1 AT 3MG WAS DISPENSED ON 05-DEC-2024 ALONG WITH IDE KIT
     Route: 048

REACTIONS (2)
  - Drug intolerance [Unknown]
  - Therapy cessation [Unknown]

NARRATIVE: CASE EVENT DATE: 20250201
